FAERS Safety Report 14987166 (Version 2)
Quarter: 2018Q3

REPORT INFORMATION
  Report Type: Spontaneous
  Country: GB (occurrence: GB)
  Receive Date: 20180608
  Receipt Date: 20180903
  Transmission Date: 20181010
  Serious: Yes (Other)
  Sender: FDA-Public Use
  Company Number: GB-TEVA-2018-GB-903056

PATIENT
  Age: 55 Year
  Sex: Male
  Weight: 78 kg

DRUGS (5)
  1. DICLOFENAC SODIUM. [Suspect]
     Active Substance: DICLOFENAC SODIUM
     Dosage: 150 MILLIGRAM DAILY;
     Route: 065
     Dates: start: 20090512, end: 20090928
  2. FLUCLOXACILLIN [Concomitant]
     Active Substance: FLUCLOXACILLIN
     Indication: ANTIBIOTIC THERAPY
     Dosage: 4 DOSAGE FORMS DAILY;
     Route: 065
     Dates: start: 20180330
  3. AMITRIPTYLINE HYDROCHLORIDE. [Concomitant]
     Active Substance: AMITRIPTYLINE HYDROCHLORIDE
     Dosage: 1 DOSAGE FORMS DAILY; NIGHT
     Route: 065
     Dates: start: 20171121
  4. COCODAMOL [Concomitant]
     Active Substance: ACETAMINOPHEN\CODEINE PHOSPHATE
     Dosage: 8 DOSAGE FORMS DAILY;
     Route: 065
  5. DICLOFENAC SODIUM. [Suspect]
     Active Substance: DICLOFENAC SODIUM
     Indication: LUMBAR VERTEBRAL FRACTURE
     Route: 065
     Dates: start: 20180330

REACTIONS (4)
  - Blood urine present [Unknown]
  - Dysuria [Unknown]
  - Lower gastrointestinal haemorrhage [Not Recovered/Not Resolved]
  - Thrombosis [Unknown]

NARRATIVE: CASE EVENT DATE: 20090930
